FAERS Safety Report 13199802 (Version 8)
Quarter: 2018Q4

REPORT INFORMATION
  Report Type: Report from Study
  Country: US (occurrence: US)
  Receive Date: 20170208
  Receipt Date: 20181001
  Transmission Date: 20190204
  Serious: Yes (Hospitalization, Other)
  Sender: FDA-Public Use
  Company Number: US-ACTELION-A-US2017-149127

PATIENT
  Age: 60 Year
  Sex: Female

DRUGS (1)
  1. OPSUMIT [Suspect]
     Active Substance: MACITENTAN
     Indication: PULMONARY ARTERIAL HYPERTENSION
     Dosage: UNK
     Route: 048
     Dates: start: 20161228, end: 20170428

REACTIONS (19)
  - Subdural haematoma [Recovered/Resolved]
  - Pain [Unknown]
  - Dyspnoea [Unknown]
  - Orthopnoea [Unknown]
  - Fall [Unknown]
  - Headache [Unknown]
  - Hepatic encephalopathy [Recovered/Resolved with Sequelae]
  - Memory impairment [Recovered/Resolved with Sequelae]
  - Anaemia [Recovered/Resolved with Sequelae]
  - Hypoxia [Recovered/Resolved with Sequelae]
  - Portal hypertensive gastropathy [Recovered/Resolved with Sequelae]
  - Mental status changes [Recovered/Resolved with Sequelae]
  - Ammonia abnormal [Recovered/Resolved with Sequelae]
  - Gastrointestinal haemorrhage [Recovered/Resolved with Sequelae]
  - Haemoglobin decreased [Recovered/Resolved with Sequelae]
  - Dizziness [Unknown]
  - Acute kidney injury [Recovered/Resolved]
  - Humerus fracture [Recovered/Resolved]
  - Oedema peripheral [Unknown]

NARRATIVE: CASE EVENT DATE: 2017
